FAERS Safety Report 22280645 (Version 1)
Quarter: 2023Q2

REPORT INFORMATION
  Report Type: Spontaneous
  Country: US (occurrence: None)
  Receive Date: 20230502
  Receipt Date: 20230502
  Transmission Date: 20230721
  Serious: Yes (Death)
  Sender: FDA-Public Use
  Company Number: None

PATIENT
  Age: 69 Year
  Sex: Male

DRUGS (1)
  1. PAXLOVID [Suspect]
     Active Substance: NIRMATRELVIR\RITONAVIR
     Indication: Respiratory symptom

REACTIONS (4)
  - SARS-CoV-2 test negative [None]
  - Sudden cardiac death [None]
  - Adverse drug reaction [None]
  - Product prescribing issue [None]

NARRATIVE: CASE EVENT DATE: 20230424
